FAERS Safety Report 4428943-3 (Version None)
Quarter: 2004Q3

REPORT INFORMATION
  Report Type: 
  Country: None (occurrence: None)
  Receive Date: 20040818
  Receipt Date: 20031223
  Transmission Date: 20050211
  Serious: No
  Sender: FDA-Public Use
  Company Number: US-GLAXOSMITHKLINE-A0494051A

PATIENT
  Age: 36 Year
  Sex: Female
  Weight: 108.6 kg

DRUGS (2)
  1. LOTRONEX [Suspect]
     Indication: IRRITABLE BOWEL SYNDROME
     Dosage: 1MG TWICE PER DAY
     Route: 048
     Dates: start: 20001001, end: 20001101
  2. PRILOSEC [Concomitant]
     Dosage: 20MG PER DAY

REACTIONS (1)
  - CONSTIPATION [None]
